FAERS Safety Report 6104021-2 (Version None)
Quarter: 2009Q1

REPORT INFORMATION
  Report Type: 
  Country: None (occurrence: None)
  Receive Date: 20090305
  Receipt Date: 20090303
  Transmission Date: 20090719
  Serious: Yes (Death)
  Sender: FDA-Public Use
  Company Number: US-ASTRAZENECA-2007UW16022

PATIENT
  Age: 27741 Day
  Sex: Female

DRUGS (2)
  1. SEROQUEL [Suspect]
     Indication: SLEEP DISORDER
     Route: 048
  2. RISPERDAL [Suspect]

REACTIONS (7)
  - ARTHRITIS [None]
  - CELLULITIS [None]
  - INJURY [None]
  - MALNUTRITION [None]
  - SEPSIS [None]
  - TREMOR [None]
  - TYPE 2 DIABETES MELLITUS [None]
